FAERS Safety Report 9346333 (Version 1)
Quarter: 2013Q2

REPORT INFORMATION
  Report Type: Spontaneous
  Country: US (occurrence: US)
  Receive Date: 20130613
  Receipt Date: 20130613
  Transmission Date: 20140414
  Serious: Yes (Death)
  Sender: FDA-Public Use
  Company Number: US-INCYTE CORPORATION-2013IN001196

PATIENT
  Age: 76 Year
  Sex: Male

DRUGS (10)
  1. JAKAFI [Suspect]
     Indication: MYELOFIBROSIS
     Dosage: 10 MG, BID
     Route: 048
     Dates: start: 201302
  2. METFORMIN [Concomitant]
  3. CALCIUM [Concomitant]
  4. CENTRUM SILVER [Concomitant]
  5. RAPAFLO [Concomitant]
  6. ASPIRIN [Concomitant]
     Dosage: 81 MG, UNK
  7. DESMOPRESSIN [Concomitant]
  8. PRANDIN [Concomitant]
  9. AMBIEN [Concomitant]
  10. PRILOSEC [Concomitant]

REACTIONS (1)
  - Death [Fatal]
